FAERS Safety Report 5334108-3 (Version None)
Quarter: 2007Q2

REPORT INFORMATION
  Report Type: 
  Country: None (occurrence: None)
  Receive Date: 20070523
  Receipt Date: 20070523
  Transmission Date: 20071010
  Serious: Yes (Other)
  Sender: FDA-Public Use
  Company Number: None

PATIENT
  Age: 34 Year
  Sex: Female

DRUGS (1)
  1. TUBERSOL [Suspect]
     Dosage: YEARLY
     Route: 023

REACTIONS (3)
  - LOCAL REACTION [None]
  - SKIN IRRITATION [None]
  - URTICARIA [None]
